FAERS Safety Report 23353230 (Version 1)
Quarter: 2023Q4

REPORT INFORMATION
  Report Type: Spontaneous
  Country: BR (occurrence: BR)
  Receive Date: 20231230
  Receipt Date: 20231230
  Transmission Date: 20240110
  Serious: Yes (Hospitalization)
  Sender: FDA-Public Use
  Company Number: BR-JNJFOC-20231260827

PATIENT
  Age: 49 Year
  Sex: Male
  Weight: 102 kg

DRUGS (7)
  1. STELARA [Suspect]
     Active Substance: USTEKINUMAB
     Indication: Psoriasis
     Dosage: 2 APPLICATIONS OF 45MG EVERY 8 WEEKS
     Route: 058
     Dates: start: 20220122
  2. CARVEDILOL [Concomitant]
     Active Substance: CARVEDILOL
  3. SPIRONOLACTONE [Concomitant]
     Active Substance: SPIRONOLACTONE
  4. ASPIRIN [Concomitant]
     Active Substance: ASPIRIN
  5. SIMVASTATIN [Concomitant]
     Active Substance: SIMVASTATIN
  6. FLUOXETINE [Concomitant]
     Active Substance: FLUOXETINE HYDROCHLORIDE
  7. CLONAZEPAM [Concomitant]
     Active Substance: CLONAZEPAM

REACTIONS (2)
  - Bullous erysipelas [Recovered/Resolved]
  - Product dose omission issue [Unknown]
